FAERS Safety Report 5395092-X (Version None)
Quarter: 2007Q3

REPORT INFORMATION
  Report Type: 
  Country: None (occurrence: None)
  Receive Date: 20070724
  Receipt Date: 20070713
  Transmission Date: 20080115
  Serious: Yes (Death, Hospitalization)
  Sender: FDA-Public Use
  Company Number: IT-NOVOPROD-265737

PATIENT
  Sex: Male
  Weight: 81 kg

DRUGS (6)
  1. NOVOLOG MIX 70/30 [Suspect]
     Indication: INSULIN-REQUIRING TYPE II DIABETES MELLITUS
     Dosage: 42 IU, QD
     Dates: start: 20060608
  2. IRBESARTAN [Concomitant]
     Dosage: 300 MG, QD
     Route: 048
     Dates: start: 20030407
  3. AMLODIPINE [Concomitant]
     Dosage: 10 MG, QD
     Route: 048
     Dates: start: 20030101
  4. ACETYLSALICYLIC ACID SRT [Concomitant]
     Dosage: 300 MG, QD
     Route: 048
     Dates: start: 19970101
  5. ROSUVASTATINE [Concomitant]
     Dosage: 10 MG, QD
     Route: 048
     Dates: start: 20070216
  6. INSULIN ASPART [Concomitant]
     Dosage: 15 IU, QD
     Route: 058
     Dates: start: 20060704

REACTIONS (1)
  - ACUTE MYOCARDIAL INFARCTION [None]
